FAERS Safety Report 16796019 (Version 2)
Quarter: 2019Q4

REPORT INFORMATION
  Report Type: Report from Study
  Country: IT (occurrence: IT)
  Receive Date: 20190911
  Receipt Date: 20191204
  Transmission Date: 20200122
  Serious: Yes (Life-Threatening)
  Sender: FDA-Public Use
  Company Number: IT-MYLANLABS-2019M1085372

PATIENT
  Age: 75 Year
  Sex: Female

DRUGS (12)
  1. METFORMIN [Concomitant]
     Active Substance: METFORMIN HYDROCHLORIDE
     Dosage: UNK
  2. ARCOXIA [Concomitant]
     Active Substance: ETORICOXIB
     Dosage: UNK
  3. ESOMEPRAZOLE SODIUM. [Concomitant]
     Active Substance: ESOMEPRAZOLE SODIUM
     Dosage: UNK
  4. LOSARTAN. [Suspect]
     Active Substance: LOSARTAN
     Dosage: UNK
     Route: 048
     Dates: start: 20190307
  5. DIOSMIN [Concomitant]
     Active Substance: DIOSMIN
     Dosage: UNK
  6. LOSARTAN. [Suspect]
     Active Substance: LOSARTAN
     Indication: HYPERTENSION
     Dosage: UNK
     Route: 048
  7. GANFORT [Concomitant]
     Active Substance: BIMATOPROST\TIMOLOL
     Dosage: UNK
  8. ACETYLSALICYLIC ACID [Concomitant]
     Active Substance: ASPIRIN
     Dosage: UNK
  9. ROSUVASTATIN CALCIUM. [Concomitant]
     Active Substance: ROSUVASTATIN CALCIUM
     Dosage: UNK
  10. ETIZOLAM [Concomitant]
     Active Substance: ETIZOLAM
     Dosage: UNK
  11. IGROTON [Suspect]
     Active Substance: CHLORTHALIDONE
     Indication: HYPERTENSION
     Dosage: UNK
     Route: 048
  12. IGROTON [Suspect]
     Active Substance: CHLORTHALIDONE
     Dosage: 1 DOSAGE FORM
     Route: 048
     Dates: start: 20190307

REACTIONS (3)
  - Syncope [Recovering/Resolving]
  - Hypotension [Recovering/Resolving]
  - Bradycardia [Recovering/Resolving]

NARRATIVE: CASE EVENT DATE: 20190307
